FAERS Safety Report 21430240 (Version 1)
Quarter: 2022Q4

REPORT INFORMATION
  Report Type: Spontaneous
  Country: US (occurrence: US)
  Receive Date: 20221009
  Receipt Date: 20221009
  Transmission Date: 20230112
  Serious: Yes (Hospitalization, Disabling, Other)
  Sender: FDA-Public Use
  Company Number: US-009507513-1411USA000577

PATIENT
  Sex: Female

DRUGS (4)
  1. FOSAMAX [Suspect]
     Active Substance: ALENDRONATE SODIUM
     Indication: Osteoporosis
     Dosage: 70 MILLIGRAM
     Route: 048
     Dates: start: 200005, end: 20050531
  2. FOSAMAX [Suspect]
     Active Substance: ALENDRONATE SODIUM
     Dosage: 5 MILLIGRAM, QD
     Route: 048
     Dates: end: 2000
  3. FOSAMAX [Suspect]
     Active Substance: ALENDRONATE SODIUM
     Dosage: 35 MG ONCE A WEEK
     Route: 048
     Dates: start: 2000
  4. PREMARIN [Concomitant]
     Active Substance: ESTROGENS, CONJUGATED
     Indication: Hormone replacement therapy
     Dosage: 1.25 MG, QD
     Route: 048
     Dates: start: 1993

REACTIONS (15)
  - Haemorrhage [Unknown]
  - Fall [Unknown]
  - Psoriatic arthropathy [Unknown]
  - Foot fracture [Unknown]
  - Breast cancer [Unknown]
  - Femur fracture [Unknown]
  - Femur fracture [Unknown]
  - Fracture delayed union [Unknown]
  - Fibromyalgia [Unknown]
  - Osteoarthritis [Unknown]
  - Chronic idiopathic pain syndrome [Unknown]
  - Herpes zoster [Unknown]
  - Psoriasis [Unknown]
  - Anaemia [Unknown]
  - Impaired healing [Recovered/Resolved]

NARRATIVE: CASE EVENT DATE: 20020101
